FAERS Safety Report 8053863-5 (Version None)
Quarter: 2012Q1

REPORT INFORMATION
  Report Type: 
  Country: None (occurrence: None)
  Receive Date: 20120118
  Receipt Date: 20120111
  Transmission Date: 20120608
  Serious: Yes (Hospitalization)
  Sender: FDA-Public Use
  Company Number: JP-TEVA-2011005551

PATIENT
  Sex: Female

DRUGS (5)
  1. BENDAMUSTINE HCL [Suspect]
     Indication: B-CELL LYMPHOMA
     Route: 042
     Dates: start: 20111006, end: 20111007
  2. RITUXIMAB [Concomitant]
     Dates: start: 20111005, end: 20111102
  3. FILGRASTIM [Concomitant]
     Dates: start: 20111013, end: 20111024
  4. SULFAMETHOXAZOLE AND TRIMETHOPRIM [Concomitant]
     Dates: start: 20111006, end: 20111128
  5. BENDAMUSTINE HCL [Suspect]
     Route: 042
     Dates: start: 20111102

REACTIONS (3)
  - PYREXIA [None]
  - ILEUS [None]
  - WHITE BLOOD CELL COUNT DECREASED [None]
